FAERS Safety Report 15788694 (Version 1)
Quarter: 2019Q1

REPORT INFORMATION
  Report Type: Spontaneous
  Country: AU (occurrence: AU)
  Receive Date: 20190104
  Receipt Date: 20190104
  Transmission Date: 20190417
  Serious: Yes (Other)
  Sender: FDA-Public Use
  Company Number: AU-BAUSCH-BL-2019-000089

PATIENT
  Sex: Male

DRUGS (2)
  1. ATROPINE. [Suspect]
     Active Substance: ATROPINE
     Indication: OFF LABEL USE
  2. ATROPINE. [Suspect]
     Active Substance: ATROPINE
     Indication: PRODUCT USED FOR UNKNOWN INDICATION
     Route: 065

REACTIONS (5)
  - Urinary tract infection [Unknown]
  - Hallucination [Unknown]
  - Dry mouth [Unknown]
  - Renal failure [Unknown]
  - Off label use [Unknown]
